FAERS Safety Report 5955496-0 (Version None)
Quarter: 2008Q4

REPORT INFORMATION
  Report Type: 
  Country: None (occurrence: None)
  Receive Date: 20081112
  Receipt Date: 20081028
  Transmission Date: 20090506
  Serious: Yes (Hospitalization)
  Sender: FDA-Public Use
  Company Number: 1000001587

PATIENT
  Age: 86 Year
  Sex: Female

DRUGS (4)
  1. ESCITALOPRAM [Suspect]
     Indication: MAJOR DEPRESSION
     Dosage: 5 MG (5 MG, 1 IN 1 D), ORAL
     Route: 048
  2. KARDEGIC (75 MILLIGRAM, POWDER) [Suspect]
     Indication: ISCHAEMIC STROKE
     Dosage: 75 MG (75 MG, 1 IN 1 D), ORAL
     Route: 048
  3. TRIATEC [Concomitant]
  4. LYRICA [Concomitant]

REACTIONS (4)
  - DIVERTICULUM INTESTINAL [None]
  - INTESTINAL ISCHAEMIA [None]
  - INTESTINAL ULCER [None]
  - RECTAL HAEMORRHAGE [None]
